FAERS Safety Report 5053526-4 (Version None)
Quarter: 2006Q3

REPORT INFORMATION
  Report Type: 
  Country: None (occurrence: None)
  Receive Date: 20060712
  Receipt Date: 20060622
  Transmission Date: 20061208
  Serious: Yes (Hospitalization)
  Sender: FDA-Public Use
  Company Number: ES200606005909

PATIENT
  Age: 82 Year
  Sex: Female

DRUGS (6)
  1. FORTEO [Suspect]
     Indication: OSTEOPOROSIS
     Dosage: 20 UG, DAILY (1/D), SUBCUTANEOUS
     Route: 058
     Dates: start: 20060301, end: 20060501
  2. FORTEO PEN (FORTEO PEN) PEN, DISPOSABLE [Concomitant]
  3. LEVOTHROID [Concomitant]
  4. LORAZEPAM [Concomitant]
  5. DIGOXIN [Concomitant]
  6. BOI K (POTASSIUM ASCORBATE) [Concomitant]

REACTIONS (4)
  - CONDITION AGGRAVATED [None]
  - HEPATIC CYST [None]
  - PAIN [None]
  - PYREXIA [None]
